APPROVED DRUG PRODUCT: METHYLPHENIDATE HYDROCHLORIDE
Active Ingredient: METHYLPHENIDATE HYDROCHLORIDE
Strength: 10MG/5ML
Dosage Form/Route: SOLUTION;ORAL
Application: A213567 | Product #002 | TE Code: AA
Applicant: QUAGEN PHARMACEUTICALS LLC
Approved: Jun 4, 2020 | RLD: No | RS: No | Type: RX